FAERS Safety Report 5329808-5 (Version None)
Quarter: 2007Q2

REPORT INFORMATION
  Report Type: 
  Country: None (occurrence: None)
  Receive Date: 20070517
  Receipt Date: 20070517
  Transmission Date: 20071010
  Serious: Yes (Disabling)
  Sender: FDA-Public Use
  Company Number: None

PATIENT
  Age: 57 Year
  Sex: Female
  Weight: 59.8748 kg

DRUGS (3)
  1. DEPOCYT [Suspect]
     Indication: BREAST CANCER
     Dosage: 2X PER MONTH INTRATHECAL
     Route: 037
     Dates: start: 20060701, end: 20061101
  2. DEPOCYT [Suspect]
     Indication: METASTASES TO MENINGES
     Dosage: 2X PER MONTH INTRATHECAL
     Route: 037
     Dates: start: 20060701, end: 20061101
  3. DEPOCYT [Suspect]
     Indication: METASTASES TO SPINE
     Dosage: 2X PER MONTH INTRATHECAL
     Route: 037
     Dates: start: 20060701, end: 20061101

REACTIONS (4)
  - ASTHENIA [None]
  - HYPOAESTHESIA [None]
  - NERVE INJURY [None]
  - PARALYSIS [None]
